FAERS Safety Report 9344594 (Version 1)
Quarter: 2013Q2

REPORT INFORMATION
  Report Type: Spontaneous
  Country: CA (occurrence: CA)
  Receive Date: 20130612
  Receipt Date: 20130612
  Transmission Date: 20140414
  Serious: Yes (Hospitalization, Disabling, Other)
  Sender: FDA-Public Use
  Company Number: CA-009507513-1306CAN004878

PATIENT
  Age: 53 Year
  Sex: Female

DRUGS (1)
  1. REMERON [Suspect]
     Indication: PRODUCT USED FOR UNKNOWN INDICATION
     Dosage: UNK
     Dates: start: 201008, end: 20101103

REACTIONS (9)
  - Anxiety [Unknown]
  - Headache [Unknown]
  - Nightmare [Unknown]
  - Tremor [Unknown]
  - Tremor [Unknown]
  - Agitation [Unknown]
  - Insomnia [Unknown]
  - Convulsion [Unknown]
  - Drug withdrawal syndrome [Unknown]
